FAERS Safety Report 5386883-X (Version None)
Quarter: 2007Q3

REPORT INFORMATION
  Report Type: 
  Country: None (occurrence: None)
  Receive Date: 20070713
  Receipt Date: 20070703
  Transmission Date: 20080115
  Serious: Yes (Hospitalization)
  Sender: FDA-Public Use
  Company Number: JP-PFIZER INC-2007044080

PATIENT
  Sex: Female

DRUGS (8)
  1. NORVASC [Suspect]
     Indication: HYPERTENSION
  2. DILTIAZEM [Suspect]
     Indication: HYPERTENSION
     Dosage: DAILY DOSE:100MG
     Route: 048
     Dates: start: 20070101, end: 20070330
  3. METHYCOBAL [Suspect]
     Indication: ANGINA PECTORIS
     Route: 048
  4. ISOSORBIDE DINITRATE [Suspect]
     Indication: ANGINA PECTORIS
     Route: 048
  5. MAGNESIUM OXIDE [Suspect]
     Indication: CONSTIPATION
     Route: 048
  6. UFT [Suspect]
     Indication: BLADDER CANCER
     Route: 048
  7. HICEE [Suspect]
     Indication: BLADDER CANCER
     Dosage: TEXT:2 PACK
     Route: 048
  8. DAI-KENCHU-TO [Suspect]
     Indication: BLADDER CANCER
     Route: 048

REACTIONS (3)
  - DYSPHORIA [None]
  - SICK SINUS SYNDROME [None]
  - VOMITING [None]
